FAERS Safety Report 4649140-2 (Version None)
Quarter: 2005Q2

REPORT INFORMATION
  Report Type: 
  Country: None (occurrence: None)
  Receive Date: 20050429
  Receipt Date: 20050428
  Transmission Date: 20051028
  Serious: Yes (Hospitalization)
  Sender: FDA-Public Use
  Company Number: FR-GLAXOSMITHKLINE-B0379568A

PATIENT
  Age: 79 Year
  Sex: Male

DRUGS (3)
  1. CLAMOXYL [Suspect]
     Indication: STREPTOCOCCAL INFECTION
     Dosage: 8G PER DAY
     Route: 042
     Dates: start: 20040308, end: 20040422
  2. GENTAMICIN [Concomitant]
     Indication: STREPTOCOCCAL INFECTION
     Dosage: 100MG PER DAY
     Route: 042
     Dates: start: 20040308, end: 20040402
  3. ANDROCUR [Concomitant]
     Indication: NEOPLASM PROSTATE
     Route: 065

REACTIONS (6)
  - ABNORMAL BEHAVIOUR [None]
  - AGGRESSION [None]
  - CONFUSIONAL STATE [None]
  - DISORIENTATION [None]
  - DRUG LEVEL INCREASED [None]
  - HALLUCINATION [None]
